FAERS Safety Report 4327656-6 (Version None)
Quarter: 2004Q1

REPORT INFORMATION
  Report Type: 
  Country: None (occurrence: None)
  Receive Date: 20040325
  Receipt Date: 20040303
  Transmission Date: 20041129
  Serious: Yes (Hospitalization)
  Sender: FDA-Public Use
  Company Number: HQWYE637908MAR04

PATIENT
  Age: 30 Year
  Sex: Female
  Weight: 54.48 kg

DRUGS (5)
  1. EFFEXOR XR [Suspect]
     Indication: DEPRESSION
     Dosage: SEE IMAGE  (THERAPY DATES: SEE IMAGE)
     Route: 048
     Dates: start: 20020201
  2. EFFEXOR XR [Suspect]
     Indication: SUICIDAL IDEATION
     Dosage: SEE IMAGE  (THERAPY DATES: SEE IMAGE)
     Route: 048
     Dates: start: 20020201
  3. SYNTHROID [Concomitant]
  4. DANAZOL [Concomitant]
  5. PREVACID [Concomitant]

REACTIONS (4)
  - DRUG WITHDRAWAL SYNDROME [None]
  - FEELING ABNORMAL [None]
  - INSOMNIA [None]
  - SOMNOLENCE [None]
